FAERS Safety Report 21254937 (Version 1)
Quarter: 2022Q3

REPORT INFORMATION
  Report Type: Spontaneous
  Country: US (occurrence: None)
  Receive Date: 20220824
  Receipt Date: 20220824
  Transmission Date: 20221027
  Serious: Yes (Hospitalization, Disabling)
  Sender: FDA-Public Use
  Company Number: None

PATIENT
  Age: 76 Year
  Sex: Male
  Weight: 76.2 kg

DRUGS (7)
  1. CAPECITABINE [Suspect]
     Active Substance: CAPECITABINE
     Indication: Colorectal cancer
     Dosage: OTHER FREQUENCY : ONE AM/TWO PM;?
     Route: 048
     Dates: start: 202204, end: 202208
  2. SIMVASTATIN [Concomitant]
     Active Substance: SIMVASTATIN
  3. KCL [Concomitant]
     Active Substance: POTASSIUM CHLORIDE
  4. CARVEDILOL [Concomitant]
  5. FUROSEMIDE [Concomitant]
     Active Substance: FUROSEMIDE
  6. ASPIRIN [Concomitant]
     Active Substance: ASPIRIN
  7. CLOPIDOGREL [Concomitant]
     Active Substance: CLOPIDOGREL BISULFATE

REACTIONS (4)
  - Asthenia [None]
  - Malaise [None]
  - Weight increased [None]
  - Pneumonia [None]

NARRATIVE: CASE EVENT DATE: 20220729
